FAERS Safety Report 6932577-6 (Version None)
Quarter: 2010Q3

REPORT INFORMATION
  Report Type: 
  Country: None (occurrence: None)
  Receive Date: 20100817
  Receipt Date: 20100809
  Transmission Date: 20110219
  Serious: Yes (Disabling, Other)
  Sender: FDA-Public Use
  Company Number: TRP_07186_2010

PATIENT
  Sex: Male

DRUGS (1)
  1. RIBAVARIN [Suspect]
     Indication: PRODUCT USED FOR UNKNOWN INDICATION
     Dosage: (1200 MG, DAILY)
     Dates: start: 20100525

REACTIONS (2)
  - HAEMOPTYSIS [None]
  - ORAL DISCOMFORT [None]
